FAERS Safety Report 16973747 (Version 1)
Quarter: 2019Q4

REPORT INFORMATION
  Report Type: Spontaneous
  Country: RO (occurrence: RO)
  Receive Date: 20191030
  Receipt Date: 20191030
  Transmission Date: 20200122
  Serious: Yes (Other)
  Sender: FDA-Public Use
  Company Number: RO-TEVA-2019-RO-1128764

PATIENT
  Age: 64 Year
  Sex: Female

DRUGS (2)
  1. BISOPROLOL [Suspect]
     Active Substance: BISOPROLOL
     Indication: PULMONARY SARCOIDOSIS
     Route: 065
  2. CANDESARTAN. [Concomitant]
     Active Substance: CANDESARTAN
     Indication: PULMONARY SARCOIDOSIS

REACTIONS (3)
  - Urticaria [Recovered/Resolved]
  - Systemic lupus erythematosus [Recovered/Resolved]
  - Neutrophilic dermatosis [Recovered/Resolved]
